FAERS Safety Report 7447028-5 (Version None)
Quarter: 2011Q2

REPORT INFORMATION
  Report Type: 
  Country: None (occurrence: None)
  Receive Date: 20110429
  Receipt Date: 20110425
  Transmission Date: 20111010
  Serious: Yes (Hospitalization)
  Sender: FDA-Public Use
  Company Number: KR-EISAI INC-E2020-09048-SOL-KR

PATIENT
  Sex: Male

DRUGS (3)
  1. ARICEPT [Suspect]
     Indication: MEMORY IMPAIRMENT
     Dosage: UNKNOWN
     Route: 048
  2. APIBAXAN [Concomitant]
     Indication: THROMBOSIS PROPHYLAXIS
     Route: 048
     Dates: start: 20091221, end: 20110218
  3. WARFARIN SODIUM [Concomitant]
     Indication: THROMBOSIS PROPHYLAXIS
     Route: 048
     Dates: start: 20091221, end: 20110216

REACTIONS (2)
  - PSYCHOTIC DISORDER [None]
  - DELIRIUM [None]
